FAERS Safety Report 4440641-9 (Version None)
Quarter: 2004Q3

REPORT INFORMATION
  Report Type: 
  Country: None (occurrence: None)
  Receive Date: 20040901
  Receipt Date: 20040901
  Transmission Date: 20050211
  Serious: Yes (Hospitalization)
  Sender: FDA-Public Use
  Company Number: None

PATIENT
  Sex: Female
  Weight: 81.6475 kg

DRUGS (7)
  1. FLUOROURACIL [Suspect]
     Indication: CHEMOTHERAPY
     Dosage: PRIOR TO ADMISSION
  2. AVASTIN [Suspect]
     Indication: CHEMOTHERAPY
     Dosage: PRIOR TO ADMISSION
  3. LOTREL [Concomitant]
  4. PRILOSEC [Concomitant]
  5. BUSPAR [Concomitant]
  6. ZIAC [Concomitant]
  7. TYLENOL [Concomitant]

REACTIONS (1)
  - VERTIGO [None]
